FAERS Safety Report 16464704 (Version 1)
Quarter: 2019Q2

REPORT INFORMATION
  Report Type: Spontaneous
  Country: CA (occurrence: CA)
  Receive Date: 20190621
  Receipt Date: 20190621
  Transmission Date: 20190711
  Serious: Yes (Other)
  Sender: FDA-Public Use
  Company Number: CA-TEVA-2019-CA-1065272

PATIENT
  Age: 59 Year
  Sex: Female

DRUGS (1)
  1. PANTOPRAZOLE SODIUM ANHYDROUS [Suspect]
     Active Substance: PANTOPRAZOLE SODIUM ANHYDROUS
     Indication: INSOMNIA
     Dosage: 80 MILLIGRAM DAILY;
     Route: 048

REACTIONS (2)
  - Dyspepsia [Unknown]
  - Drug ineffective [Unknown]
